FAERS Safety Report 15766199 (Version 3)
Quarter: 2019Q3

REPORT INFORMATION
  Report Type: Report from Study
  Country: CA (occurrence: CA)
  Receive Date: 20181227
  Receipt Date: 20190823
  Transmission Date: 20191004
  Serious: Yes (Other)
  Sender: FDA-Public Use
  Company Number: CA-GLAXOSMITHKLINE-CA2018GSK232411

PATIENT
  Age: 74 Year
  Sex: Male

DRUGS (6)
  1. PULMICORT TURBUHALER [Suspect]
     Active Substance: BUDESONIDE
     Indication: PRODUCT USED FOR UNKNOWN INDICATION
     Dosage: UNK
     Route: 055
  2. NUCALA [Suspect]
     Active Substance: MEPOLIZUMAB
     Indication: ASTHMA
     Dosage: 100 MG, Z MONTHLY
     Route: 042
  3. SALBUTAMOL SULPHATE [Suspect]
     Active Substance: ALBUTEROL SULFATE
     Indication: ASTHMA
     Dosage: UNK, PRN
  4. NUCALA [Suspect]
     Active Substance: MEPOLIZUMAB
     Dosage: 100 MG, Z, MONTHLY
     Route: 042
  5. NUCALA [Suspect]
     Active Substance: MEPOLIZUMAB
     Dosage: 100 MG, Z, MONTHLY
     Route: 042
  6. SYMBICORT [Suspect]
     Active Substance: BUDESONIDE\FORMOTEROL FUMARATE DIHYDRATE
     Indication: PRODUCT USED FOR UNKNOWN INDICATION
     Dosage: UNK UNK, BID

REACTIONS (9)
  - Dysphonia [Unknown]
  - Dyspnoea [Unknown]
  - Sinusitis [Unknown]
  - Fatigue [Unknown]
  - Productive cough [Unknown]
  - Pneumonia [Unknown]
  - Monocyte count abnormal [Unknown]
  - Respiration abnormal [Unknown]
  - Loss of personal independence in daily activities [Recovered/Resolved]

NARRATIVE: CASE EVENT DATE: 20181009
